FAERS Safety Report 12795118 (Version 2)
Quarter: 2016Q4

REPORT INFORMATION
  Report Type: Spontaneous
  Country: JP (occurrence: JP)
  Receive Date: 20160929
  Receipt Date: 20161019
  Transmission Date: 20170207
  Serious: Yes (Hospitalization, Other)
  Sender: FDA-Public Use
  Company Number: JP-GLAXOSMITHKLINE-JP2016JPN140834

PATIENT
  Age: 70 Year
  Sex: Male

DRUGS (1)
  1. ACYCLOVIR. [Suspect]
     Active Substance: ACYCLOVIR
     Indication: GENITAL HERPES
     Dosage: 2000 MG, 1D
     Route: 048

REACTIONS (6)
  - Toxic encephalopathy [Unknown]
  - Dysarthria [Recovering/Resolving]
  - Altered state of consciousness [Recovering/Resolving]
  - Asterixis [Unknown]
  - Extensor plantar response [Unknown]
  - Abnormal behaviour [Recovering/Resolving]
